FAERS Safety Report 5393643-2 (Version None)
Quarter: 2007Q3

REPORT INFORMATION
  Report Type: 
  Country: None (occurrence: None)
  Receive Date: 20070723
  Receipt Date: 20061012
  Transmission Date: 20080115
  Serious: No
  Sender: FDA-Public Use
  Company Number: A0623584A

PATIENT
  Age: 56 Year
  Sex: Female

DRUGS (2)
  1. AVANDIA [Suspect]
     Indication: DRUG USE FOR UNKNOWN INDICATION
     Route: 048
     Dates: start: 20060101
  2. BYETTA [Suspect]
     Indication: DIABETES MELLITUS
     Route: 058
     Dates: start: 20060101

REACTIONS (2)
  - DERMATITIS CONTACT [None]
  - MUSCLE SPASMS [None]
